FAERS Safety Report 4726384-2 (Version None)
Quarter: 2005Q3

REPORT INFORMATION
  Report Type: 
  Country: None (occurrence: None)
  Receive Date: 20050727
  Receipt Date: 20050711
  Transmission Date: 20060218
  Serious: Yes (Other)
  Sender: FDA-Public Use
  Company Number: TRP_0150_2005

PATIENT
  Age: 49 Year
  Sex: Female

DRUGS (12)
  1. RIBASPHERE [Suspect]
     Indication: HEPATITIS C
     Dosage: DF PO
     Route: 048
     Dates: start: 20050226, end: 20050603
  2. PEG-INTRON [Suspect]
     Indication: HEPATITIS C
     Dosage: DF SC
     Route: 058
     Dates: start: 20050226, end: 20050603
  3. FIORICET [Concomitant]
  4. HYDROCODONE BITARTRATE [Concomitant]
  5. INDERAL [Concomitant]
  6. LEXAPRO [Concomitant]
  7. PROMETHAZINE HCL [Concomitant]
  8. RANITIDINE [Concomitant]
  9. SEROQUEL [Concomitant]
  10. VALIUM [Concomitant]
  11. FIORICET (TABLETS) [Concomitant]
  12. HYDROCODONE BITARTRATE [Concomitant]

REACTIONS (8)
  - ASTHENIA [None]
  - DEHYDRATION [None]
  - DYSURIA [None]
  - FATIGUE [None]
  - LOSS OF CONSCIOUSNESS [None]
  - NAUSEA [None]
  - PANCREATITIS [None]
  - WEIGHT DECREASED [None]
